FAERS Safety Report 7229189-6 (Version None)
Quarter: 2011Q1

REPORT INFORMATION
  Report Type: 
  Country: None (occurrence: None)
  Receive Date: 20110117
  Receipt Date: 20101215
  Transmission Date: 20110831
  Serious: Yes (Hospitalization)
  Sender: FDA-Public Use
  Company Number: ES-JNJFOC-20110102474

PATIENT
  Age: 41 Year
  Sex: Male

DRUGS (3)
  1. PREDNISONE [Concomitant]
  2. REMICADE [Suspect]
     Indication: ANKYLOSING SPONDYLITIS
     Route: 042
  3. METHOTREXATE [Concomitant]

REACTIONS (2)
  - SALMONELLOSIS [None]
  - SEPSIS [None]
